FAERS Safety Report 21249336 (Version 5)
Quarter: 2023Q4

REPORT INFORMATION
  Report Type: Spontaneous
  Country: IN (occurrence: IN)
  Receive Date: 20220824
  Receipt Date: 20231002
  Transmission Date: 20240109
  Serious: Yes (Other)
  Sender: FDA-Public Use
  Company Number: IN-PFIZER INC-PV202200048314

PATIENT
  Age: 71 Year
  Sex: Female

DRUGS (8)
  1. PALBOCICLIB [Suspect]
     Active Substance: PALBOCICLIB
     Indication: Breast cancer metastatic
     Dosage: 125 MG, X 21 DAYS THEN 7 DAYS OFF
     Route: 048
     Dates: start: 202205
  2. PALBOCICLIB [Suspect]
     Active Substance: PALBOCICLIB
     Dosage: 100 MG, X 21 DAYS, 7 DAYS OFF
     Route: 048
  3. PALBOCICLIB [Suspect]
     Active Substance: PALBOCICLIB
     Dosage: 125 MG, 1X/DAY
     Route: 048
  4. ANASTROZOLE [Concomitant]
     Active Substance: ANASTROZOLE
     Dosage: 1 MG, 1X/DAY
  5. CALCIUM CARBONATE\CHOLECALCIFEROL [Concomitant]
     Active Substance: CALCIUM CARBONATE\CHOLECALCIFEROL
     Dosage: 1 TAB, 1X/DAY
  6. ZOLEDRONIC ACID [Concomitant]
     Active Substance: ZOLEDRONIC ACID
     Dosage: 4 MG, IN 100ML NS OVER 30MIN MONTHLY
  7. DOLO 650 [Concomitant]
     Indication: Pain
  8. LETROZOLE [Concomitant]
     Active Substance: LETROZOLE
     Dosage: UNK

REACTIONS (6)
  - Blood pressure systolic increased [Unknown]
  - Back pain [Recovering/Resolving]
  - Vital functions abnormal [Unknown]
  - Haemoglobin decreased [Unknown]
  - White blood cell count decreased [Unknown]
  - Lymphocyte count abnormal [Unknown]

NARRATIVE: CASE EVENT DATE: 20230818
